FAERS Safety Report 6004025-4 (Version None)
Quarter: 2008Q4

REPORT INFORMATION
  Report Type: 
  Country: None (occurrence: None)
  Receive Date: 20081216
  Receipt Date: 20081211
  Transmission Date: 20090506
  Serious: Yes (Hospitalization)
  Sender: FDA-Public Use
  Company Number: A0760022A

PATIENT
  Age: 19 Year
  Sex: Female

DRUGS (3)
  1. LAMICTAL [Suspect]
     Indication: BIPOLAR DISORDER
     Dosage: 150MG PER DAY
     Route: 048
  2. ZOLOFT [Suspect]
  3. MIRTAZAPINE [Concomitant]

REACTIONS (8)
  - DEPRESSION [None]
  - DRUG INEFFECTIVE [None]
  - HYPOAESTHESIA [None]
  - IRRITABILITY [None]
  - MIGRAINE [None]
  - PYREXIA [None]
  - RESTLESS LEGS SYNDROME [None]
  - SUICIDE ATTEMPT [None]
